FAERS Safety Report 8808912 (Version 1)
Quarter: 2012Q4

REPORT INFORMATION
  Report Type: 
  Country: US (occurrence: US)
  Receive Date: 20120926
  Receipt Date: 20120926
  Transmission Date: 20130627
  Serious: No
  Sender: FDA-Public Use
  Company Number: US-BAYER-2012-098671

PATIENT
  Age: 38 Year
  Sex: Male

DRUGS (8)
  1. BETASERON [Suspect]
     Dosage: UNK UNK, QOD
     Route: 058
  2. MICARDIS [Concomitant]
     Dosage: 20 mg, UNK
     Route: 048
  3. ACIPHEX [Concomitant]
     Dosage: 20 mg, UNK
     Route: 048
  4. TOPAMAX [Concomitant]
     Dosage: 25 mg, UNK
     Route: 048
  5. NEURONTIN [Concomitant]
     Dosage: 300 mg, UNK
     Route: 048
  6. OXYCONTIN [Concomitant]
     Dosage: 20MG CR
     Route: 048
  7. TEGRETOL [Concomitant]
     Dosage: 200 mg, UNK
     Route: 048
  8. CLONAZEPAM [Concomitant]
     Dosage: 0.5 mg, UNK
     Route: 048

REACTIONS (1)
  - Injection site pain [Unknown]
